FAERS Safety Report 6313668-X (Version None)
Quarter: 2009Q3

REPORT INFORMATION
  Report Type: 
  Country: None (occurrence: None)
  Receive Date: 20090814
  Receipt Date: 20090729
  Transmission Date: 20100115
  Serious: Yes (Death)
  Sender: FDA-Public Use
  Company Number: 002383

PATIENT
  Age: 77 Year
  Sex: Female
  Weight: 50.5 kg

DRUGS (2)
  1. MACUGEN [Suspect]
     Indication: CHOROIDAL NEOVASCULARISATION
     Dosage: 0.3 MG, INTRAOCULAR
     Route: 031
     Dates: start: 20090317
  2. MACUGEN [Suspect]
     Indication: MACULOPATHY
     Dosage: 0.3 MG, INTRAOCULAR
     Route: 031
     Dates: start: 20090317

REACTIONS (1)
  - NONSPECIFIC REACTION [None]
